FAERS Safety Report 26082683 (Version 1)
Quarter: 2025Q4

REPORT INFORMATION
  Report Type: Spontaneous
  Country: US (occurrence: None)
  Receive Date: 20251122
  Receipt Date: 20251122
  Transmission Date: 20260118
  Serious: Yes (Other)
  Sender: FDA-CTU
  Company Number: None

PATIENT
  Age: 77 Year
  Sex: Female

DRUGS (2)
  1. TERIPARATIDE [Suspect]
     Active Substance: TERIPARATIDE
     Indication: Senile osteoporosis
     Dosage: 80MCG QD
  2. FORTEO [Suspect]
     Active Substance: TERIPARATIDE

REACTIONS (3)
  - Therapeutic product effect delayed [None]
  - Pelvic fracture [None]
  - Fractured coccyx [None]
